FAERS Safety Report 5400697-3 (Version None)
Quarter: 2007Q3

REPORT INFORMATION
  Report Type: 
  Country: None (occurrence: None)
  Receive Date: 20070730
  Receipt Date: 20070725
  Transmission Date: 20080115
  Serious: Yes (Death)
  Sender: FDA-Public Use
  Company Number: MX-PFIZER INC-2007062059

PATIENT
  Sex: Female

DRUGS (1)
  1. SERTRALINE [Suspect]
     Indication: DEPRESSION
     Route: 048

REACTIONS (3)
  - CONGENITAL ANOMALY [None]
  - HEART DISEASE CONGENITAL [None]
  - TRANSMISSION OF DRUG VIA SEMEN [None]
